FAERS Safety Report 9825422 (Version 2)
Quarter: 2015Q1

REPORT INFORMATION
  Report Type: Spontaneous
  Country: US (occurrence: US)
  Receive Date: 20140117
  Receipt Date: 20150128
  Transmission Date: 20150721
  Serious: No
  Sender: FDA-Public Use
  Company Number: US-PFIZER INC-2014013691

PATIENT
  Age: 80 Year
  Sex: Male

DRUGS (5)
  1. LOPID [Suspect]
     Active Substance: GEMFIBROZIL
     Dosage: UNK
  2. DUROGESIC [Suspect]
     Active Substance: FENTANYL
     Dosage: UNK
  3. PLAVIX [Suspect]
     Active Substance: CLOPIDOGREL BISULFATE
     Dosage: UNK
  4. TRICOREX [Suspect]
     Active Substance: AMBROXOL\GUAIFENESIN\TERBUTALINE
     Dosage: UNK
  5. RANEXA [Suspect]
     Active Substance: RANOLAZINE
     Dosage: UNK

REACTIONS (1)
  - Drug hypersensitivity [Unknown]
